FAERS Safety Report 9430471 (Version 3)
Quarter: 2013Q3

REPORT INFORMATION
  Report Type: Report from Study
  Country: JP (occurrence: JP)
  Receive Date: 20130730
  Receipt Date: 20130820
  Transmission Date: 20140515
  Serious: Yes (Hospitalization)
  Sender: FDA-Public Use
  Company Number: JP-GLAXOSMITHKLINE-B0911132A

PATIENT
  Age: 65 Year
  Sex: Female
  Weight: 44 kg

DRUGS (19)
  1. TYKERB [Suspect]
     Indication: HER-2 POSITIVE BREAST CANCER
     Dosage: 1000MG PER DAY
     Route: 048
     Dates: start: 20130501
  2. TYKERB [Suspect]
     Indication: HER-2 POSITIVE BREAST CANCER
     Dosage: 750MG PER DAY
     Route: 048
     Dates: end: 20130721
  3. TYKERB [Suspect]
     Indication: HER-2 POSITIVE BREAST CANCER
     Dosage: 750MG PER DAY
     Route: 048
     Dates: start: 20130730, end: 20130809
  4. HERCEPTIN [Concomitant]
     Indication: HER-2 POSITIVE BREAST CANCER
     Route: 042
     Dates: start: 20130501
  5. HERCEPTIN [Concomitant]
     Indication: HER-2 POSITIVE BREAST CANCER
     Route: 042
     Dates: end: 20130716
  6. HERCEPTIN [Concomitant]
     Indication: HER-2 POSITIVE BREAST CANCER
     Route: 042
     Dates: start: 20130730
  7. PACLITAXEL [Concomitant]
     Indication: HER-2 POSITIVE BREAST CANCER
     Route: 042
     Dates: start: 20130610, end: 20130716
  8. PACLITAXEL [Concomitant]
     Indication: HER-2 POSITIVE BREAST CANCER
     Route: 042
     Dates: start: 20130730
  9. LETROZOLE [Concomitant]
     Indication: HER-2 POSITIVE BREAST CANCER
     Dosage: 2.5MG PER DAY
     Route: 048
     Dates: start: 20130501, end: 20130721
  10. LOPERAMIDE [Concomitant]
     Indication: DIARRHOEA
     Route: 048
     Dates: start: 20130524
  11. LOXONIN [Concomitant]
     Indication: ARTHRALGIA
     Route: 062
     Dates: start: 20130709
  12. WHITE PETROLATUM [Concomitant]
     Indication: DRY SKIN
     Route: 061
     Dates: start: 20130604
  13. SAHNE [Concomitant]
     Indication: DRY SKIN
     Route: 061
     Dates: start: 20130604
  14. BESOFTEN [Concomitant]
     Indication: DRY SKIN
     Route: 061
     Dates: start: 20130604
  15. PRIMPERAN [Concomitant]
     Indication: NAUSEA
     Dosage: 5MG THREE TIMES PER DAY
     Route: 048
     Dates: start: 20130702
  16. HACHIAZULE [Concomitant]
     Indication: STOMATITIS
     Route: 002
     Dates: start: 20130702
  17. GLYCERIN [Concomitant]
     Indication: STOMATITIS
     Route: 002
     Dates: start: 20130702
  18. XYLOCAINE [Concomitant]
     Indication: STOMATITIS
     Route: 002
     Dates: start: 20130702
  19. ORAL CREAM [Concomitant]
     Indication: STOMATITIS
     Route: 061
     Dates: start: 20130702

REACTIONS (3)
  - Diarrhoea [Recovered/Resolved]
  - Dehydration [Recovered/Resolved]
  - Diarrhoea [Recovered/Resolved]
